FAERS Safety Report 6743448-2 (Version None)
Quarter: 2010Q2

REPORT INFORMATION
  Report Type: 
  Country: None (occurrence: None)
  Receive Date: 20100527
  Receipt Date: 20100507
  Transmission Date: 20101027
  Serious: Yes (Hospitalization)
  Sender: FDA-Public Use
  Company Number: US-JNJFOC-20100502263

PATIENT
  Sex: Female

DRUGS (2)
  1. CONCENTRATED TYLENOL INFANT DROPS [Suspect]
     Indication: TEETHING
     Dosage: COUPLE OF MONTHS
     Route: 065
  2. CONCENTRATED TYLENOL INFANT DROPS [Suspect]
     Indication: EAR INFECTION
     Dosage: COUPLE OF MONTHS
     Route: 065

REACTIONS (2)
  - OSTEOMYELITIS [None]
  - PRODUCT QUALITY ISSUE [None]
